FAERS Safety Report 10862392 (Version 1)
Quarter: 2015Q1

REPORT INFORMATION
  Report Type: Spontaneous
  Country: DE (occurrence: None)
  Receive Date: 20150219
  Receipt Date: 20150219
  Transmission Date: 20150721
  Serious: Yes (Hospitalization)
  Sender: FDA-Public Use
  Company Number: VIT-2015-00270

PATIENT
  Age: 75 Year
  Sex: Female
  Weight: 81 kg

DRUGS (13)
  1. LEVOTHYROXINE SODIUM. [Concomitant]
     Active Substance: LEVOTHYROXINE SODIUM
  2. ASCORBIC ACID. [Concomitant]
     Active Substance: ASCORBIC ACID
  3. TORASEMIDE [Concomitant]
     Active Substance: TORSEMIDE
  4. XIPAMIDE [Concomitant]
     Active Substance: XIPAMIDE
  5. MARCUMAR [Concomitant]
     Active Substance: PHENPROCOUMON
  6. METOPROLOL SUCCINATE. [Concomitant]
     Active Substance: METOPROLOL SUCCINATE
  7. FOLSAN [Concomitant]
     Active Substance: FOLIC ACID
  8. VELPHORO [Suspect]
     Active Substance: FERRIC OXYHYDROXIDE
     Indication: PRODUCT USED FOR UNKNOWN INDICATION
     Route: 048
     Dates: start: 20141211, end: 20150129
  9. PANTOPRAZOLE [Concomitant]
     Active Substance: PANTOPRAZOLE SODIUM
  10. AMIODARONE [Concomitant]
     Active Substance: AMIODARONE
  11. MAGNESIUM CITRATE. [Concomitant]
     Active Substance: MAGNESIUM CITRATE
  12. LOPERAMIDE [Concomitant]
     Active Substance: LOPERAMIDE
  13. VITAMIN B12 [Concomitant]
     Active Substance: CYANOCOBALAMIN

REACTIONS (3)
  - Haemoglobin decreased [None]
  - Abdominal discomfort [None]
  - Gastric haemorrhage [None]

NARRATIVE: CASE EVENT DATE: 20150120
